FAERS Safety Report 5050325-4 (Version None)
Quarter: 2006Q3

REPORT INFORMATION
  Report Type: 
  Country: None (occurrence: None)
  Receive Date: 20060706
  Receipt Date: 20060623
  Transmission Date: 20061208
  Serious: Yes (Death, Life-Threatening, Other)
  Sender: FDA-Public Use
  Company Number: MC200600339

PATIENT
  Age: 86 Year
  Sex: Male

DRUGS (2)
  1. ANGIOMAX [Suspect]
     Indication: CORONARY ANGIOPLASTY
     Dosage: 0.75 MG/KG, BOLUS, IV BOLUS; 1.75 MG/KG, HR, INTRAVENOUS
     Route: 040
     Dates: start: 20060525, end: 20060525
  2. ANGIOMAX [Suspect]
     Indication: CORONARY ANGIOPLASTY
     Dosage: 0.75 MG/KG, BOLUS, IV BOLUS; 1.75 MG/KG, HR, INTRAVENOUS
     Route: 040
     Dates: start: 20060525, end: 20060525

REACTIONS (3)
  - BLOOD PRESSURE DECREASED [None]
  - CORONARY ARTERY PERFORATION [None]
  - PROCEDURAL COMPLICATION [None]
